FAERS Safety Report 5072272-4 (Version None)
Quarter: 2006Q3

REPORT INFORMATION
  Report Type: 
  Country: None (occurrence: None)
  Receive Date: 20060807
  Receipt Date: 20060725
  Transmission Date: 20061208
  Serious: Yes (Hospitalization, Other)
  Sender: FDA-Public Use
  Company Number: CA-AMGEN-KDL185718

PATIENT
  Sex: Male
  Weight: 82 kg

DRUGS (4)
  1. KEPIVANCE [Suspect]
     Indication: STOMATITIS
     Route: 042
     Dates: start: 20060627, end: 20060706
  2. NEUPOGEN [Suspect]
     Indication: CHEMOTHERAPY
     Route: 065
  3. ETOPOSIDE [Suspect]
     Route: 065
     Dates: start: 20060630, end: 20060630
  4. MELPHALAN [Concomitant]
     Route: 065
     Dates: start: 20060701, end: 20060701

REACTIONS (13)
  - BLISTER [None]
  - ERYTHEMA [None]
  - MUCOSAL INFLAMMATION [None]
  - NEUROPATHY [None]
  - NEUTROPHIL COUNT INCREASED [None]
  - OEDEMA PERIPHERAL [None]
  - ORAL VIRAL INFECTION [None]
  - PETECHIAE [None]
  - RASH MACULO-PAPULAR [None]
  - SALIVARY HYPERSECRETION [None]
  - SKIN EXFOLIATION [None]
  - STOMATITIS [None]
  - TONGUE ULCERATION [None]
